FAERS Safety Report 8704861 (Version 2)
Quarter: 2012Q4

REPORT INFORMATION
  Report Type: 
  Country: JP (occurrence: JP)
  Receive Date: 20120803
  Receipt Date: 20120914
  Transmission Date: 20130627
  Serious: Yes (Other)
  Sender: FDA-Public Use
  Company Number: JP-AMGEN-JPNCT2012048474

PATIENT
  Age: 68 Year
  Sex: Female
  Weight: 56 kg

DRUGS (8)
  1. DARBEPOETIN ALFA [Suspect]
     Indication: NEPHROGENIC ANAEMIA
     Dosage: 6 mug, q4wk
     Route: 058
     Dates: start: 20110620
  2. PRECIPITATED CALCIUM CARBONATE [Concomitant]
     Indication: DIABETIC NEPHROPATHY
     Dosage: UNK
     Route: 048
  3. JUSO [Concomitant]
     Indication: DIABETIC NEPHROPATHY
     Dosage: UNK
     Route: 048
  4. HUMALOG [Concomitant]
     Indication: DIABETIC NEPHROPATHY
     Dosage: UNK
     Route: 065
  5. LANTUS [Concomitant]
     Indication: DIABETIC NEPHROPATHY
     Dosage: UNK
     Route: 065
  6. WARFARIN [Concomitant]
     Dosage: UNK
     Route: 048
  7. ASPENON [Concomitant]
     Dosage: UNK
     Route: 048
  8. TAKEPRON [Concomitant]
     Dosage: UNK
     Route: 048

REACTIONS (1)
  - Atrial fibrillation [Recovered/Resolved]
